FAERS Safety Report 7089213-0 (Version None)
Quarter: 2010Q4

REPORT INFORMATION
  Report Type: 
  Country: None (occurrence: None)
  Receive Date: 20101029
  Receipt Date: 20101019
  Transmission Date: 20110411
  Serious: Yes (Hospitalization)
  Sender: FDA-Public Use
  Company Number: 2010EU005491

PATIENT
  Age: 21 Year
  Sex: Male

DRUGS (3)
  1. PROTOPIC [Suspect]
     Indication: DERMATITIS ATOPIC
     Dosage: 0.1 %, BID, TOPICAL; 0.1 %, OTHER, TOPICAL
     Route: 061
     Dates: start: 20100426, end: 20100517
  2. PROTOPIC [Suspect]
     Indication: DERMATITIS ATOPIC
     Dosage: 0.1 %, BID, TOPICAL; 0.1 %, OTHER, TOPICAL
     Route: 061
     Dates: start: 20100517, end: 20100624
  3. PROTOPIC [Suspect]
     Indication: DERMATITIS ATOPIC
     Dosage: 0.1 %, BID, TOPICAL; 0.1 %, OTHER, TOPICAL
     Route: 061
     Dates: start: 20100624

REACTIONS (2)
  - DERMATITIS ATOPIC [None]
  - DRUG INEFFECTIVE [None]
